FAERS Safety Report 12397515 (Version 1)
Quarter: 2016Q2

REPORT INFORMATION
  Report Type: Spontaneous
  Country: US (occurrence: US)
  Receive Date: 20160524
  Receipt Date: 20160524
  Transmission Date: 20160815
  Serious: No
  Sender: FDA-Public Use
  Company Number: US-GLAXOSMITHKLINE-US2016GSK071336

PATIENT
  Sex: Female

DRUGS (2)
  1. SORIATANE [Suspect]
     Active Substance: ACITRETIN
     Indication: SKIN DISORDER
     Dosage: 3 TIMES PER WEEK
     Dates: start: 2015
  2. SORIATANE [Suspect]
     Active Substance: ACITRETIN
     Dosage: 5 TIMES PER WEEK

REACTIONS (3)
  - Rash [Unknown]
  - Rash pruritic [Unknown]
  - Drug ineffective [Unknown]
